FAERS Safety Report 24429414 (Version 4)
Quarter: 2025Q4

REPORT INFORMATION
  Report Type: Spontaneous
  Country: US (occurrence: US)
  Receive Date: 20241011
  Receipt Date: 20251023
  Transmission Date: 20260117
  Serious: No
  Sender: SANOFI AVENTIS
  Company Number: US-SA-2024SA293064

PATIENT
  Age: 19 Year
  Sex: Male

DRUGS (3)
  1. FABRAZYME [Suspect]
     Active Substance: AGALSIDASE BETA
     Dosage: 50 (15+35) MG, QOW
     Route: 040
     Dates: end: 2024
  2. FABRAZYME [Suspect]
     Active Substance: AGALSIDASE BETA
     Dosage: 50 (15+35) MG, QOW
     Route: 065
     Dates: end: 20250205
  3. FABRAZYME [Suspect]
     Active Substance: AGALSIDASE BETA
     Dosage: 50 (15+35) MG, QOW
     Route: 065
     Dates: end: 2025

REACTIONS (2)
  - Illness [Unknown]
  - Product dose omission in error [Unknown]

NARRATIVE: CASE EVENT DATE: 20240918
